FAERS Safety Report 8158537-8 (Version None)
Quarter: 2012Q1

REPORT INFORMATION
  Report Type: 
  Country: None (occurrence: None)
  Receive Date: 20120217
  Receipt Date: 20120207
  Transmission Date: 20120608
  Serious: Yes (Other)
  Sender: FDA-Public Use
  Company Number: AUR-APL-2012-00718

PATIENT
  Age: 21 Year
  Sex: Male

DRUGS (1)
  1. ZOLPIDEM [Suspect]
     Indication: INSOMNIA
     Dosage: 12.5 MG, AT BED TIME

REACTIONS (15)
  - IMPRISONMENT [None]
  - SLEEP DISORDER [None]
  - BALANCE DISORDER [None]
  - PARASOMNIA [None]
  - CONFUSIONAL STATE [None]
  - DYSARTHRIA [None]
  - DYSSTASIA [None]
  - ABNORMAL BEHAVIOUR [None]
  - SLEEP INERTIA [None]
  - SOMNAMBULISM [None]
  - DRUG LEVEL INCREASED [None]
  - AMNESIA [None]
  - ALCOHOL USE [None]
  - IMPAIRED DRIVING ABILITY [None]
  - DEPRESSED LEVEL OF CONSCIOUSNESS [None]
